FAERS Safety Report 9964339 (Version 1)
Quarter: 2014Q1

REPORT INFORMATION
  Report Type: Spontaneous
  Country: US (occurrence: US)
  Receive Date: 20140305
  Receipt Date: 20140305
  Transmission Date: 20141002
  Serious: Yes (Hospitalization)
  Sender: FDA-Public Use
  Company Number: US-GLAXOSMITHKLINE-A1063432A

PATIENT
  Sex: Male

DRUGS (4)
  1. ARIXTRA [Suspect]
     Indication: CONVULSION
     Dosage: 7.5MG UNKNOWN
     Route: 042
     Dates: start: 20120405
  2. ADVAIR [Suspect]
     Indication: PRODUCT USED FOR UNKNOWN INDICATION
     Route: 055
     Dates: start: 20041209
  3. COUMADIN [Concomitant]
  4. UNSPECIFIED INHALER [Concomitant]

REACTIONS (1)
  - Investigation [Unknown]
